FAERS Safety Report 6863480-8 (Version None)
Quarter: 2010Q3

REPORT INFORMATION
  Report Type: 
  Country: None (occurrence: None)
  Receive Date: 20100721
  Receipt Date: 20100709
  Transmission Date: 20110219
  Serious: Yes (Other)
  Sender: FDA-Public Use
  Company Number: US-PFIZER INC-2010086780

PATIENT
  Sex: Female
  Weight: 70 kg

DRUGS (6)
  1. TIKOSYN [Suspect]
     Indication: ATRIAL FIBRILLATION
     Dosage: UNK
     Route: 048
     Dates: start: 20091201
  2. TOPROL-XL [Concomitant]
     Dosage: 25 MG, 2X/DAY
  3. LIPITOR [Concomitant]
     Dosage: 20 MG, DAILY
  4. POTASSIUM [Concomitant]
     Dosage: 20 MEQ, UNK
  5. AVANDIA [Concomitant]
     Dosage: UNK
  6. WARFARIN [Concomitant]
     Dosage: 5 MG, UNK

REACTIONS (3)
  - BLOOD PRESSURE INCREASED [None]
  - INTERVERTEBRAL DISC DEGENERATION [None]
  - OSTEOARTHRITIS [None]
